FAERS Safety Report 4748696-9 (Version None)
Quarter: 2005Q3

REPORT INFORMATION
  Report Type: 
  Country: None (occurrence: None)
  Receive Date: 20050819
  Receipt Date: 20050503
  Transmission Date: 20060218
  Serious: Yes (Hospitalization)
  Sender: FDA-Public Use
  Company Number: DE-AMGEN-UK130906

PATIENT
  Sex: Male

DRUGS (11)
  1. CINACALCET [Suspect]
     Indication: HYPERPARATHYROIDISM SECONDARY
     Route: 048
     Dates: start: 20050222
  2. FUROSEMIDE [Concomitant]
     Route: 065
  3. SIMVASTATIN [Concomitant]
     Route: 065
  4. MAGNESIUM ASPARTATE [Concomitant]
     Route: 065
  5. PANTOPRAZOLE [Concomitant]
     Route: 065
  6. CALCITRIOL [Concomitant]
     Route: 065
  7. LERCANIDIPINE HYDROCHLORIDE [Concomitant]
     Route: 065
  8. CARVEDILOL [Concomitant]
     Route: 065
  9. RAMIPRIL [Concomitant]
     Route: 065
  10. INSULIN [Concomitant]
     Route: 065
  11. FRAGMIN [Concomitant]
     Route: 065

REACTIONS (10)
  - ANXIETY [None]
  - BUNDLE BRANCH BLOCK RIGHT [None]
  - CAROTID ARTERY ATHEROMA [None]
  - DYSPEPSIA [None]
  - DYSPHAGIA [None]
  - DYSPNOEA [None]
  - HYPERHIDROSIS [None]
  - INSOMNIA [None]
  - MAJOR DEPRESSION [None]
  - SINUS BRADYCARDIA [None]
